FAERS Safety Report 20068220 (Version 2)
Quarter: 2021Q4

REPORT INFORMATION
  Report Type: Spontaneous
  Country: US (occurrence: US)
  Receive Date: 20211115
  Receipt Date: 20211207
  Transmission Date: 20220303
  Serious: No
  Sender: FDA-Public Use
  Company Number: US-BEH-2021138092

PATIENT
  Sex: Female

DRUGS (2)
  1. HIZENTRA [Suspect]
     Active Substance: HUMAN IMMUNOGLOBULIN G
     Indication: Immunodeficiency common variable
     Dosage: 1 GRAM, QW (TOTAL 9GRAM,QW)
     Route: 058
     Dates: start: 20211015
  2. HIZENTRA [Suspect]
     Active Substance: HUMAN IMMUNOGLOBULIN G
     Dosage: 8 GRAM, QW (TOTAL 9GRAM,QW)
     Route: 058
     Dates: start: 20211015

REACTIONS (5)
  - Infusion site pruritus [Unknown]
  - Headache [Unknown]
  - Muscle spasms [Unknown]
  - Muscle twitching [Unknown]
  - Injection site urticaria [Unknown]
